FAERS Safety Report 21522339 (Version 1)
Quarter: 2022Q4

REPORT INFORMATION
  Report Type: Spontaneous
  Country: US (occurrence: US)
  Receive Date: 20221028
  Receipt Date: 20221028
  Transmission Date: 20230113
  Serious: Yes (Death)
  Sender: FDA-Public Use
  Company Number: US-STRIDES ARCOLAB LIMITED-2022SP014215

PATIENT
  Age: 23 Year
  Sex: Female

DRUGS (11)
  1. PREDNISOLONE [Suspect]
     Active Substance: PREDNISOLONE
     Indication: Plasmablastic lymphoma
     Dosage: UNK, CYCLICAL,DOSE-ADJUSTED V-EPOCH
     Route: 065
  2. DOXORUBICIN [Suspect]
     Active Substance: DOXORUBICIN
     Indication: Plasmablastic lymphoma
     Dosage: UNK, CYCLICAL,DOSE-ADJUSTED V-EPOCH
     Route: 065
  3. ETOPOSIDE [Suspect]
     Active Substance: ETOPOSIDE
     Indication: Plasmablastic lymphoma
     Dosage: UNK, CYCLICAL,DOSE-ADJUSTED V-EPOCH
     Route: 065
  4. ETOPOSIDE [Suspect]
     Active Substance: ETOPOSIDE
     Dosage: UNK, ICE (IFOSFAMIDE, CARBOPLATIN, AND ETOPOSIDE) REGIMEN
     Route: 065
  5. BORTEZOMIB [Suspect]
     Active Substance: BORTEZOMIB
     Indication: Plasmablastic lymphoma
     Dosage: UNK, CYCLICAL,DOSE-ADJUSTED V-EPOCH
     Route: 065
  6. VINCRISTINE [Suspect]
     Active Substance: VINCRISTINE
     Indication: Plasmablastic lymphoma
     Dosage: UNK, CYCLICAL,DOSE-ADJUSTED V-EPOCH
     Route: 065
  7. CYCLOPHOSPHAMIDE [Suspect]
     Active Substance: CYCLOPHOSPHAMIDE
     Indication: Plasmablastic lymphoma
     Dosage: UNK, CYCLICAL,DOSE-ADJUSTED V-EPOCH
     Route: 065
  8. IFOSFAMIDE [Suspect]
     Active Substance: IFOSFAMIDE
     Indication: Plasmablastic lymphoma
     Dosage: UNK, ICE (IFOSFAMIDE, CARBOPLATIN, AND ETOPOSIDE) REGIMEN
     Route: 065
  9. CARBOPLATIN [Suspect]
     Active Substance: CARBOPLATIN
     Indication: Plasmablastic lymphoma
     Dosage: UNK, ICE (IFOSFAMIDE, CARBOPLATIN, AND ETOPOSIDE) REGIMEN
     Route: 065
  10. CARFILZOMIB [Suspect]
     Active Substance: CARFILZOMIB
     Indication: Plasmablastic lymphoma
     Dosage: UNK, STANDARD DOSE ADDED TO REGIMEN FOR ONE CYCLE
     Route: 065
  11. OCTREOTIDE [Concomitant]
     Active Substance: OCTREOTIDE
     Indication: Gorham^s disease
     Dosage: UNK
     Route: 065

REACTIONS (4)
  - Small intestinal obstruction [Fatal]
  - Neutropenia [Fatal]
  - Febrile neutropenia [Fatal]
  - Drug ineffective for unapproved indication [Fatal]
